FAERS Safety Report 8762007 (Version 4)
Quarter: 2013Q1

REPORT INFORMATION
  Report Type: Spontaneous
  Country: US (occurrence: US)
  Receive Date: 20120829
  Receipt Date: 20130102
  Transmission Date: 20140127
  Serious: Yes (Life-Threatening, Hospitalization, Congenital Anomaly, Other)
  Sender: FDA-Public Use
  Company Number: US-PFIZER INC-2012210132

PATIENT
  Sex: Male
  Weight: 2.77 kg

DRUGS (4)
  1. ZOLOFT [Suspect]
     Indication: DEPRESSION
     Dosage: UNK
     Route: 064
     Dates: start: 2008
  2. AMBIEN [Concomitant]
     Indication: SLEEP DISORDER
     Dosage: UNK
     Route: 064
  3. PERCOCET [Concomitant]
     Dosage: UNK, AT BED TIME
     Route: 064
  4. PRENATAL VITAMINS [Concomitant]
     Dosage: UNK
     Route: 064

REACTIONS (5)
  - Maternal exposure timing unspecified [Unknown]
  - Congenital aortic stenosis [Unknown]
  - Patent ductus arteriosus [Unknown]
  - Congenital aortic valve stenosis [Unknown]
  - Pulmonary oedema neonatal [Unknown]
